FAERS Safety Report 17025494 (Version 1)
Quarter: 2019Q4

REPORT INFORMATION
  Report Type: Spontaneous
  Country: US (occurrence: US)
  Receive Date: 20191008
  Receipt Date: 20191008
  Transmission Date: 20200122
  Serious: Yes (Disabling, Other)
  Sender: FDA-Public Use
  Company Number: None

PATIENT
  Age: 17 Year
  Sex: Male

DRUGS (4)
  1. DEPAKOTE [Suspect]
     Active Substance: DIVALPROEX SODIUM
  2. MULTI-VITAMIN [Concomitant]
     Active Substance: .ALPHA.-TOCOPHEROL ACETATE, DL-\ASCORBIC ACID\CYANOCOBALAMIN\FLUORIDE ION\FOLIC ACID\NIACIN\PYRIDOXINE\RIBOFLAVIN\THIAMINE\VITAMIN A\VITAMIN D
  3. LAMOTRIGINE. [Suspect]
     Active Substance: LAMOTRIGINE
     Indication: PRODUCT USED FOR UNKNOWN INDICATION
     Dosage: ?          QUANTITY:30 DF DOSAGE FORM;OTHER FREQUENCY:2 MORNING /1 NIGHT;?
     Route: 048
     Dates: start: 2015
  4. METHYLPHENIDATE. [Suspect]
     Active Substance: METHYLPHENIDATE

REACTIONS (10)
  - Skin disorder [None]
  - Rash [None]
  - Pruritus [None]
  - Tremor [None]
  - Constipation [None]
  - Blister [None]
  - Anxiety [None]
  - Visual impairment [None]
  - Skin exfoliation [None]
  - Staphylococcal skin infection [None]

NARRATIVE: CASE EVENT DATE: 20180612
